FAERS Safety Report 10218970 (Version 2)
Quarter: 2014Q2

REPORT INFORMATION
  Report Type: Spontaneous
  Country: GB (occurrence: GB)
  Receive Date: 20140605
  Receipt Date: 20140620
  Transmission Date: 20141212
  Serious: No
  Sender: FDA-Public Use
  Company Number: GB-PFIZER INC-2014151163

PATIENT
  Sex: 0

DRUGS (1)
  1. ECALTA [Suspect]
     Indication: SYSTEMIC CANDIDA
     Dosage: UNK

REACTIONS (1)
  - Off label use [Unknown]
